FAERS Safety Report 13670293 (Version 1)
Quarter: 2017Q2

REPORT INFORMATION
  Report Type: Spontaneous
  Country: FR (occurrence: FR)
  Receive Date: 20170620
  Receipt Date: 20170620
  Transmission Date: 20170830
  Serious: Yes (Other)
  Sender: FDA-Public Use
  Company Number: FR-BAYER-2017-113995

PATIENT
  Sex: Female

DRUGS (1)
  1. MIRENA [Suspect]
     Active Substance: LEVONORGESTREL
     Indication: CHEMICAL CONTRACEPTION
     Dosage: 20 MCG/24HR, CONT
     Route: 015

REACTIONS (25)
  - Discomfort [Not Recovered/Not Resolved]
  - Skin odour abnormal [Not Recovered/Not Resolved]
  - Peripheral swelling [Not Recovered/Not Resolved]
  - Personality change [Not Recovered/Not Resolved]
  - Fatigue [Not Recovered/Not Resolved]
  - Suicide attempt [Not Recovered/Not Resolved]
  - Stress [Not Recovered/Not Resolved]
  - Vaginal haemorrhage [Not Recovered/Not Resolved]
  - Vertigo [Not Recovered/Not Resolved]
  - Nausea [Not Recovered/Not Resolved]
  - Hot flush [Not Recovered/Not Resolved]
  - Visual impairment [Not Recovered/Not Resolved]
  - Pain [Not Recovered/Not Resolved]
  - Back pain [Not Recovered/Not Resolved]
  - Aggression [Not Recovered/Not Resolved]
  - Arthralgia [Not Recovered/Not Resolved]
  - Circulatory collapse [Not Recovered/Not Resolved]
  - Acne [Not Recovered/Not Resolved]
  - Headache [Not Recovered/Not Resolved]
  - Somatic symptom disorder of pregnancy [Not Recovered/Not Resolved]
  - Depression [Not Recovered/Not Resolved]
  - Feeling abnormal [Not Recovered/Not Resolved]
  - Dizziness [Not Recovered/Not Resolved]
  - Menometrorrhagia [Not Recovered/Not Resolved]
  - Irritability [Not Recovered/Not Resolved]
